FAERS Safety Report 8976188 (Version 1)
Quarter: 2012Q4

REPORT INFORMATION
  Report Type: 
  Country: US (occurrence: US)
  Receive Date: 20121219
  Receipt Date: 20121219
  Transmission Date: 20130627
  Serious: No
  Sender: FDA-Public Use
  Company Number: US-AMGEN-USASP2012062123

PATIENT
  Age: 90 Year
  Sex: Female
  Weight: 69.84 kg

DRUGS (10)
  1. PROLIA [Suspect]
     Indication: OSTEOPOROSIS POSTMENOPAUSAL
     Dosage: 60 mg, q6mo
     Route: 058
     Dates: start: 20120307
  2. COLACE [Concomitant]
     Dosage: 100 mg, bid
     Route: 048
  3. NEXIUM [Concomitant]
     Dosage: 40 mg, bid
     Route: 048
  4. SIMVASTATIN [Concomitant]
     Dosage: 40 mg, qd
     Route: 048
  5. COREG [Concomitant]
     Dosage: 3.125 mg, bid
     Route: 048
  6. VITAMIN D3 [Concomitant]
     Dosage: 3000 IU, qd
     Route: 048
  7. MAG OXIDE [Concomitant]
     Dosage: 250 UNK, bid
     Route: 048
  8. DEMADEX [Concomitant]
     Dosage: 10 mg, qd
     Route: 048
  9. ASPIRIN [Concomitant]
     Dosage: 81 mg, qd
     Route: 048
  10. FIORICET [Concomitant]
     Dosage: UNK UNK, prn

REACTIONS (1)
  - Urinary tract infection [Recovering/Resolving]
